FAERS Safety Report 23080520 (Version 1)
Quarter: 2023Q4

REPORT INFORMATION
  Report Type: Spontaneous
  Country: US (occurrence: US)
  Receive Date: 20231018
  Receipt Date: 20231018
  Transmission Date: 20240110
  Serious: No
  Sender: FDA-Public Use
  Company Number: US-ABBVIE-5447480

PATIENT
  Age: 48 Year
  Sex: Male
  Weight: 72.6 kg

DRUGS (1)
  1. VRAYLAR [Suspect]
     Active Substance: CARIPRAZINE
     Indication: Anxiety
     Dosage: FORM STRENGTH: 1.5 MILLIGRAM
     Route: 048
     Dates: start: 20231010, end: 20231010

REACTIONS (2)
  - Product use in unapproved indication [Unknown]
  - Diarrhoea [Recovered/Resolved]

NARRATIVE: CASE EVENT DATE: 20231010
